FAERS Safety Report 7088220-1 (Version None)
Quarter: 2010Q4

REPORT INFORMATION
  Report Type: 
  Country: None (occurrence: None)
  Receive Date: 20101108
  Receipt Date: 20101026
  Transmission Date: 20110411
  Serious: Yes (Other)
  Sender: FDA-Public Use
  Company Number: US-BAYER-201024397NA

PATIENT
  Age: 22 Year
  Sex: Female
  Weight: 59 kg

DRUGS (7)
  1. YAZ [Suspect]
     Indication: ACNE
     Route: 048
     Dates: start: 20050101
  2. YASMIN [Suspect]
     Indication: ACNE
     Route: 048
     Dates: start: 20080101
  3. YASMIN [Suspect]
     Route: 048
     Dates: start: 20050617, end: 20071219
  4. YASMIN [Suspect]
     Route: 048
     Dates: start: 20040101, end: 20080101
  5. OCELLA [Suspect]
     Indication: PREMENSTRUAL SYNDROME
     Route: 048
     Dates: start: 20081216
  6. OVCON 35 TABLETS 28!S [Concomitant]
     Dates: start: 20050417
  7. LEVORA 0.15/30 TABLETS 28'S [Concomitant]
     Route: 048
     Dates: start: 20090208, end: 20091213

REACTIONS (2)
  - CHOLECYSTITIS CHRONIC [None]
  - CHOLELITHIASIS [None]
